FAERS Safety Report 12691991 (Version 1)
Quarter: 2016Q3

REPORT INFORMATION
  Report Type: Spontaneous
  Country: US (occurrence: US)
  Receive Date: 20160827
  Receipt Date: 20160827
  Transmission Date: 20161109
  Serious: No
  Sender: FDA-Public Use
  Company Number: US-ASTRAZENECA-2016SE57685

PATIENT
  Age: 989 Month
  Sex: Female
  Weight: 81.6 kg

DRUGS (11)
  1. PROAIR HFA RESCUE INHALER [Concomitant]
     Indication: COUGH
     Dosage: AS REQUIRED
     Route: 055
     Dates: start: 2006
  2. LOSARTAN. [Concomitant]
     Active Substance: LOSARTAN
     Indication: BLOOD PRESSURE MEASUREMENT
     Route: 048
     Dates: start: 2006
  3. FAMATODINE [Concomitant]
     Active Substance: FAMOTIDINE
     Indication: BONE DISORDER
     Route: 048
     Dates: start: 2006
  4. CLONAZAPAM [Concomitant]
     Active Substance: CLONAZEPAM
     Indication: PANIC ATTACK
     Route: 048
     Dates: start: 2006
  5. ESOMEPRAZOLE [Suspect]
     Active Substance: ESOMEPRAZOLE
     Indication: GASTROOESOPHAGEAL REFLUX DISEASE
     Route: 048
     Dates: start: 2006
  6. SYMBICORT [Suspect]
     Active Substance: BUDESONIDE\FORMOTEROL FUMARATE DIHYDRATE
     Indication: ASTHMA
     Dosage: 160/4.5MCG 2 PUFFS TWICE DAILY
     Route: 055
     Dates: start: 2006
  7. OSTEOBIFLEX [Concomitant]
     Dosage: DAILY
     Route: 048
     Dates: end: 201603
  8. MOVE FREE JOINT HEALTH [Concomitant]
     Route: 048
     Dates: start: 201603
  9. CALTRATE WITH VITAMIN D [Concomitant]
     Active Substance: CALCIUM CARBONATE\CHOLECALCIFEROL
     Dates: start: 2006
  10. SPIRIVA [Concomitant]
     Active Substance: TIOTROPIUM BROMIDE MONOHYDRATE
     Indication: ASTHMA
     Dosage: DAILY
     Route: 055
     Dates: start: 201605
  11. SOTALAPRAM [Concomitant]
     Indication: GASTROOESOPHAGEAL REFLUX DISEASE
     Route: 048
     Dates: start: 2006

REACTIONS (5)
  - Arthritis [Unknown]
  - Obstructive airways disorder [Unknown]
  - Asthma [Not Recovered/Not Resolved]
  - Wrong technique in product usage process [Unknown]
  - Drug ineffective [Not Recovered/Not Resolved]

NARRATIVE: CASE EVENT DATE: 201604
